FAERS Safety Report 19803480 (Version 2)
Quarter: 2021Q4

REPORT INFORMATION
  Report Type: Report from Study
  Country: GB (occurrence: GB)
  Receive Date: 20210908
  Receipt Date: 20211109
  Transmission Date: 20220303
  Serious: Yes (Hospitalization, Other)
  Sender: FDA-Public Use
  Company Number: None

PATIENT
  Sex: Female

DRUGS (4)
  1. APIXABAN [Suspect]
     Active Substance: APIXABAN
     Indication: Product used for unknown indication
     Route: 065
  2. SOLIRIS [Suspect]
     Active Substance: ECULIZUMAB
     Indication: Product used for unknown indication
     Dosage: 900 MG, Q2W
     Route: 042
     Dates: start: 20200807
  3. IMMUNOGLOBULIN [Concomitant]
     Indication: Product used for unknown indication
     Dosage: UNK, QMONTH
     Route: 065
  4. PENICILLIN [Concomitant]
     Active Substance: PENICILLIN
     Indication: Prophylaxis
     Dosage: 500 MG, BID
     Route: 065

REACTIONS (18)
  - Fatigue [Not Recovered/Not Resolved]
  - Sinusitis [Unknown]
  - Urinary tract infection [Unknown]
  - Insomnia [Not Recovered/Not Resolved]
  - Abscess [Not Recovered/Not Resolved]
  - Contusion [Not Recovered/Not Resolved]
  - Heart rate increased [Unknown]
  - Furuncle [Not Recovered/Not Resolved]
  - Poor venous access [Unknown]
  - Catheter site pain [Unknown]
  - Ear infection [Unknown]
  - Platelet count decreased [Not Recovered/Not Resolved]
  - Headache [Unknown]
  - Ear pain [Unknown]
  - Body temperature increased [Unknown]
  - Blood pressure systolic decreased [Not Recovered/Not Resolved]
  - Nasopharyngitis [Recovering/Resolving]
  - Pyrexia [Recovering/Resolving]
